FAERS Safety Report 9375198 (Version 2)
Quarter: 2013Q3

REPORT INFORMATION
  Report Type: Spontaneous
  Country: US (occurrence: US)
  Receive Date: 20130628
  Receipt Date: 20130713
  Transmission Date: 20140515
  Serious: Yes (Other)
  Sender: FDA-Public Use
  Company Number: US-TEVA-415885USA

PATIENT
  Age: 89 Year
  Sex: Female
  Weight: 58.11 kg

DRUGS (3)
  1. AZILECT [Suspect]
     Indication: PARKINSON^S DISEASE
  2. CARBIDOPA W/LEVODOPA [Concomitant]
     Indication: PARKINSON^S DISEASE
     Dosage: 25/100 MG
     Route: 048
  3. PRAMIPEXOLE [Concomitant]
     Indication: PARKINSON^S DISEASE
     Dosage: .375 MILLIGRAM DAILY;
     Route: 048

REACTIONS (4)
  - Abasia [Unknown]
  - Drug ineffective [Unknown]
  - Gait disturbance [Unknown]
  - Disease progression [Unknown]
